FAERS Safety Report 4963940-0 (Version None)
Quarter: 2006Q1

REPORT INFORMATION
  Report Type: 
  Country: None (occurrence: None)
  Receive Date: 20060330
  Receipt Date: 20060322
  Transmission Date: 20060701
  Serious: Yes (Other)
  Sender: FDA-Public Use
  Company Number: 2006040823

PATIENT
  Sex: Female
  Weight: 95.2554 kg

DRUGS (10)
  1. NEURONTIN [Suspect]
     Indication: PAIN IN EXTREMITY
     Dosage: 300 MG 9100 MG, 3 IN 1 D)
     Dates: end: 20060101
  2. NEURONTIN [Suspect]
     Indication: RESTLESS LEGS SYNDROME
     Dosage: 300 MG 9100 MG, 3 IN 1 D)
     Dates: end: 20060101
  3. LYRICA [Suspect]
     Indication: PAIN IN EXTREMITY
     Dosage: 150 MG (50 MG, 3 IN 1 D)
     Dates: start: 20060101
  4. LYRICA [Suspect]
     Indication: RESTLESS LEGS SYNDROME
     Dosage: 150 MG (50 MG, 3 IN 1 D)
     Dates: start: 20060101
  5. LIPITOR [Suspect]
     Indication: BLOOD TRIGLYCERIDES INCREASED
     Dates: start: 20060101, end: 20060101
  6. PERCOCET [Concomitant]
  7. HYDROCHLOROTHIAZIDE [Concomitant]
  8. LISINOPRIL [Concomitant]
  9. ASPIRIN [Concomitant]
  10. ULTRACET [Concomitant]

REACTIONS (14)
  - BLOOD CHOLESTEROL INCREASED [None]
  - BLOOD GLUCOSE INCREASED [None]
  - BLOOD TRIGLYCERIDES INCREASED [None]
  - BURNING SENSATION [None]
  - DIABETES MELLITUS [None]
  - DIABETIC NEUROPATHY [None]
  - DRUG INEFFECTIVE [None]
  - ECONOMIC PROBLEM [None]
  - FOOT OPERATION [None]
  - HYSTERECTOMY [None]
  - KNEE ARTHROPLASTY [None]
  - MENISCUS LESION [None]
  - SOMNOLENCE [None]
  - WEIGHT INCREASED [None]
